FAERS Safety Report 6407443-5 (Version None)
Quarter: 2009Q4

REPORT INFORMATION
  Report Type: 
  Country: None (occurrence: None)
  Receive Date: 20091020
  Receipt Date: 20091016
  Transmission Date: 20100525
  Serious: Yes (Hospitalization)
  Sender: FDA-Public Use
  Company Number: AU-BRISTOL-MYERS SQUIBB COMPANY-14651426

PATIENT
  Age: 58 Year
  Sex: Female

DRUGS (8)
  1. ABATACEPT [Suspect]
     Indication: COLITIS ULCERATIVE
     Dosage: NO OF COURSE:25
     Route: 042
     Dates: start: 20070530, end: 20090429
  2. METOPROLOL [Concomitant]
     Dates: start: 20020101
  3. PRAVASTATIN SODIUM [Concomitant]
     Dates: start: 20070816, end: 20090604
  4. FOLIC ACID [Concomitant]
     Dates: start: 20051001
  5. PREDNISOLONE [Concomitant]
     Dates: start: 20090520, end: 20090604
  6. COLIFOAM [Concomitant]
     Dates: start: 20090401, end: 20090604
  7. MERCAPTOPURINE [Concomitant]
     Dates: start: 20070124, end: 20090604
  8. ASPIRIN [Concomitant]
     Dates: start: 20080828

REACTIONS (2)
  - COLITIS ULCERATIVE [None]
  - LISTERIA SEPSIS [None]
